FAERS Safety Report 6158848-1 (Version None)
Quarter: 2009Q2

REPORT INFORMATION
  Report Type: 
  Country: None (occurrence: None)
  Receive Date: 20090417
  Receipt Date: 20090408
  Transmission Date: 20091009
  Serious: Yes (Other)
  Sender: FDA-Public Use
  Company Number: PHHY2009NL13393

PATIENT
  Sex: Female

DRUGS (5)
  1. DIOVAN HCT [Suspect]
     Indication: HYPERTENSION
     Dosage: 160/12.5 MG
     Route: 048
     Dates: start: 20090107
  2. FEMARA [Suspect]
     Dosage: 2.5 MG, UNK
  3. NEXIUM [Concomitant]
  4. TAMOXIFEN CITRATE [Concomitant]
  5. HYDROCHLOROTHIAZIDE [Concomitant]
     Dosage: 12.5 MG, UNK
     Dates: start: 20090331

REACTIONS (2)
  - FLUID RETENTION [None]
  - RENAL IMPAIRMENT [None]
